FAERS Safety Report 5992871-2 (Version None)
Quarter: 2008Q4

REPORT INFORMATION
  Report Type: 
  Country: None (occurrence: None)
  Receive Date: 20081212
  Receipt Date: 20081017
  Transmission Date: 20090506
  Serious: No
  Sender: FDA-Public Use
  Company Number: US-BAYER-200829150NA

PATIENT
  Age: 39 Year
  Sex: Female
  Weight: 50 kg

DRUGS (1)
  1. ULTRAVIST (PHARMACY BULK) [Suspect]
     Indication: COMPUTERISED TOMOGRAM KIDNEY
     Dosage: TOTAL DAILY DOSE: 110 ML  UNIT DOSE: 500 ML
     Route: 042
     Dates: start: 20080708, end: 20080708

REACTIONS (1)
  - URTICARIA [None]
